FAERS Safety Report 13633690 (Version 5)
Quarter: 2017Q4

REPORT INFORMATION
  Report Type: Spontaneous
  Country: TW (occurrence: TW)
  Receive Date: 20170609
  Receipt Date: 20171031
  Transmission Date: 20180320
  Serious: Yes (Hospitalization)
  Sender: FDA-Public Use
  Company Number: TW-AMGEN-TWNSP2017087366

PATIENT
  Age: 16 Year
  Sex: Female

DRUGS (6)
  1. ARCOXIA [Concomitant]
     Active Substance: ETORICOXIB
     Indication: PSORIATIC ARTHROPATHY
     Dosage: 1 DF, QD
     Route: 048
  2. ENBREL [Suspect]
     Active Substance: ETANERCEPT
     Indication: PSORIATIC ARTHROPATHY
     Dosage: 25 MG, BIW
     Route: 058
     Dates: start: 2017, end: 20171021
  3. FOLIC ACID. [Concomitant]
     Active Substance: FOLIC ACID
     Dosage: 6 DF, WEEKLY
     Route: 048
  4. ENBREL [Suspect]
     Active Substance: ETANERCEPT
     Indication: PSORIATIC ARTHROPATHY
     Dosage: 25 MG, BIW
     Route: 058
     Dates: start: 20140827, end: 20170604
  5. MTX [Concomitant]
     Active Substance: METHOTREXATE SODIUM
     Indication: PSORIATIC ARTHROPATHY
     Dosage: 2 DF, QW
     Route: 048
  6. MTX [Concomitant]
     Active Substance: METHOTREXATE SODIUM
     Dosage: 3 DF, WEEKLY
     Route: 048
     Dates: start: 20170617

REACTIONS (6)
  - Ankle fracture [Recovering/Resolving]
  - Psoriasis [Unknown]
  - Fall [Recovering/Resolving]
  - Intentional product misuse [Unknown]
  - Injection site reaction [Not Recovered/Not Resolved]
  - Injection site hypersensitivity [Unknown]

NARRATIVE: CASE EVENT DATE: 20170602
